FAERS Safety Report 7776168-6 (Version None)
Quarter: 2011Q3

REPORT INFORMATION
  Report Type: 
  Country: None (occurrence: None)
  Receive Date: 20110926
  Receipt Date: 20110922
  Transmission Date: 20111222
  Serious: Yes (Death, Other)
  Sender: FDA-Public Use
  Company Number: US-BRISTOL-MYERS SQUIBB COMPANY-15921901

PATIENT
  Age: 90 Year
  Sex: Male

DRUGS (9)
  1. ABILIFY [Suspect]
     Indication: DEMENTIA
     Dosage: QHS,DOSE:5MGQHS,BID
     Route: 048
     Dates: start: 20110105, end: 20110113
  2. HALOPERIDOL [Concomitant]
  3. SYNTHROID [Concomitant]
  4. ABILIFY [Suspect]
     Indication: PSYCHOTIC DISORDER
     Dosage: QHS,DOSE:5MGQHS,BID
     Route: 048
     Dates: start: 20110105, end: 20110113
  5. SENNA [Concomitant]
     Route: 048
  6. SYNTHROID [Concomitant]
  7. OMEPRAZOLE [Concomitant]
     Dosage: DOSE:20(UNITS NOT SPECIFIED).
     Route: 048
  8. FLOMAX [Concomitant]
  9. HALDOL [Concomitant]
     Dates: end: 20110105

REACTIONS (2)
  - PROSTATE CANCER [None]
  - DELUSION [None]
